FAERS Safety Report 21452497 (Version 5)
Quarter: 2022Q4

REPORT INFORMATION
  Report Type: Other
  Country: TR (occurrence: None)
  Receive Date: 20221013
  Receipt Date: 20221118
  Transmission Date: 20230113
  Serious: Yes (Death, Life-Threatening, Hospitalization)
  Sender: FDA-Public Use
  Company Number: TR-ROCHE-3189472

PATIENT
  Age: 34 Year
  Sex: Female
  Weight: 53 kg

DRUGS (16)
  1. ALECTINIB [Suspect]
     Active Substance: ALECTINIB
     Indication: Lung cancer metastatic
     Dosage: START DATE OF MOST RECENT DOSE OF STUDY DRUG PRIOR TO AE: 10-DEC-2021. DOSE LAST STUDY DRUG ADMIN PR
     Route: 048
     Dates: start: 20211021
  2. LORLATINIB [Concomitant]
     Active Substance: LORLATINIB
     Indication: Disease progression
     Route: 048
     Dates: start: 20211216, end: 20220208
  3. LEVOFLOXACIN [Concomitant]
     Active Substance: LEVOFLOXACIN
     Indication: Pharyngitis
     Route: 042
     Dates: start: 20220201, end: 20220204
  4. CEFTAZIDIME [Concomitant]
     Active Substance: CEFTAZIDIME
     Indication: Pharyngitis
     Route: 042
     Dates: start: 20220204, end: 20220208
  5. TIGECYCLINE [Concomitant]
     Active Substance: TIGECYCLINE
     Indication: Pharyngitis
     Route: 042
     Dates: start: 20220204, end: 20220208
  6. ONDANSETRON HYDROCHLORIDE [Concomitant]
     Active Substance: ONDANSETRON HYDROCHLORIDE
     Route: 030
     Dates: start: 20220128, end: 20220207
  7. ENOX (TURKEY) [Concomitant]
     Route: 058
     Dates: start: 20220128, end: 20220207
  8. IVABRADINE HYDROCHLORIDE [Concomitant]
     Active Substance: IVABRADINE HYDROCHLORIDE
     Route: 048
     Dates: start: 20220128, end: 20220207
  9. ATIVAN EXPIDET [Concomitant]
     Route: 048
     Dates: start: 20220128, end: 20220207
  10. DEKORT [Concomitant]
     Active Substance: DEXAMETHASONE
     Route: 042
     Dates: start: 20220201, end: 20220207
  11. LEFOX [Concomitant]
     Route: 042
     Dates: start: 20220201, end: 20220203
  12. AVIBACTAM SODIUM\CEFTAZIDIME [Concomitant]
     Active Substance: AVIBACTAM SODIUM\CEFTAZIDIME
     Route: 042
     Dates: start: 20220201, end: 20220207
  13. FUROMID [Concomitant]
     Route: 042
     Dates: start: 20220201, end: 20220207
  14. STENOR [Concomitant]
     Route: 042
     Dates: start: 20220203, end: 20220203
  15. TYGEPOL [Concomitant]
     Route: 042
     Dates: start: 20220204, end: 20220207
  16. VIALEBEX [Concomitant]
     Active Substance: ALBUMIN HUMAN
     Route: 042
     Dates: start: 20220204, end: 20220204

REACTIONS (9)
  - Insomnia [Not Recovered/Not Resolved]
  - Oedema peripheral [Recovered/Resolved]
  - Loss of consciousness [Recovered/Resolved]
  - Venous oxygen saturation decreased [Recovered/Resolved]
  - Dyspnoea [Fatal]
  - Asthenia [Recovered/Resolved]
  - Anaemia [Recovered/Resolved]
  - Dizziness [Recovered/Resolved]
  - Gastrooesophageal reflux disease [Recovered/Resolved]

NARRATIVE: CASE EVENT DATE: 20211210
